FAERS Safety Report 7585475-1 (Version None)
Quarter: 2011Q3

REPORT INFORMATION
  Report Type: 
  Country: None (occurrence: None)
  Receive Date: 20110701
  Receipt Date: 20110624
  Transmission Date: 20111222
  Serious: Yes (Hospitalization, Other)
  Sender: FDA-Public Use
  Company Number: US-BAYER-2010-002102

PATIENT
  Age: 36 Year
  Sex: Female
  Weight: 126.98 kg

DRUGS (5)
  1. YAZ [Suspect]
     Indication: CONTRACEPTION
     Dosage: UNK
     Route: 048
     Dates: start: 20090301, end: 20090701
  2. LOVASTATIN [Concomitant]
  3. METOPROLOL TARTRATE [Concomitant]
  4. CLARITIN-D 24 HOUR [Concomitant]
     Dosage: 1 DAILY
  5. LASIX [Concomitant]
     Dosage: 20 MG, UNK
     Route: 048

REACTIONS (3)
  - ANXIETY [None]
  - FEAR [None]
  - MYOCARDIAL INFARCTION [None]
